FAERS Safety Report 18404418 (Version 1)
Quarter: 2020Q4

REPORT INFORMATION
  Report Type: Spontaneous
  Country: US (occurrence: US)
  Receive Date: 20201020
  Receipt Date: 20201020
  Transmission Date: 20210114
  Serious: Yes (Hospitalization)
  Sender: FDA-Public Use
  Company Number: None

PATIENT
  Age: 77 Year
  Sex: Male
  Weight: 79.65 kg

DRUGS (28)
  1. OXYCODONE-APAP 10-325 MG ORAL [Concomitant]
  2. MUCINEX FAST-MAX CONGEST COUGH 2.5-5-100 MG/5M [Concomitant]
  3. DURAGESIC-100MCG/HR TD [Concomitant]
  4. MEDROL 4 MG ORAL [Concomitant]
  5. METRONIDAZOLE 500 MG ORAL [Concomitant]
  6. ZOLPIDEM TARTRATE 5 MG ORAL [Concomitant]
  7. ALPRAZOLAM 0.5 MG ORAL [Concomitant]
  8. DOCUSATE SODIUM 100 MG ORAL [Concomitant]
  9. MEGESTROL ACETATE 40 MG/ML ORAL [Concomitant]
  10. ASPIRIN ADULT 325 MG [Concomitant]
  11. FUROSEMIDE 20 MG [Concomitant]
     Active Substance: FUROSEMIDE
  12. LORASEPAM 0.5 MG [Concomitant]
  13. ERLEADA [Suspect]
     Active Substance: APALUTAMIDE
     Indication: PANCREATIC CARCINOMA
     Route: 048
     Dates: start: 20200921, end: 20201020
  14. FENTANYL 100 MCG/HR [Concomitant]
     Active Substance: FENTANYL
  15. ONDANSETRON 8 MG ORAL [Concomitant]
  16. XGEVA 120 MG/1.7 ML [Concomitant]
  17. MAGNESIUM 30 MG [Concomitant]
  18. NEXIUM 40 MG ORAL [Concomitant]
  19. FLONASE 50 MCG/ACT [Concomitant]
  20. GENTAMICIN SULFATE 0.3 % OP [Concomitant]
  21. TUSSIONEX PENNKINETIC ER [Concomitant]
  22. BOOST HIGH PROTEIN ORAL [Concomitant]
  23. PREDNISONE 10 MG ORAL [Concomitant]
  24. COLACE 100 MG ORAL [Concomitant]
  25. AMLODIPINE BESYLATE 5 MG ORAL [Concomitant]
  26. VYTORIN 10-10 MG ORAL [Concomitant]
  27. MS CONTIN 15 MG ORAL [Concomitant]
  28. ATORVASTATIN CALCIUM 20 MG [Concomitant]

REACTIONS (1)
  - Hospitalisation [None]

NARRATIVE: CASE EVENT DATE: 20201019
